FAERS Safety Report 4647137-X (Version None)
Quarter: 2005Q2

REPORT INFORMATION
  Report Type: 
  Country: None (occurrence: None)
  Receive Date: 20050428
  Receipt Date: 20050419
  Transmission Date: 20051028
  Serious: Yes (Hospitalization)
  Sender: FDA-Public Use
  Company Number: US-JNJFOC-20050206368

PATIENT
  Sex: Male
  Weight: 83.01 kg

DRUGS (16)
  1. REMICADE [Suspect]
     Route: 042
  2. REMICADE [Suspect]
     Indication: CROHN'S DISEASE
     Route: 042
  3. IMURAN [Concomitant]
  4. IMURAN [Concomitant]
  5. IMURAN [Concomitant]
  6. PREDNISONE [Concomitant]
  7. PREDNISONE [Concomitant]
     Indication: RECTAL ULCER
  8. PREDNISONE [Concomitant]
     Dosage: 40MG TO 30MG.
  9. ZOCOR [Concomitant]
  10. PEPCID [Concomitant]
  11. ANUSOL [Concomitant]
  12. ANUSOL [Concomitant]
  13. ANUSOL [Concomitant]
  14. ANUSOL [Concomitant]
  15. ANUSOL [Concomitant]
     Indication: RECTAL ULCER
  16. METAMUCIL-2 [Concomitant]
     Indication: DIVERTICULITIS

REACTIONS (10)
  - ABASIA [None]
  - ASTHENIA [None]
  - COMA [None]
  - DIARRHOEA [None]
  - HEADACHE [None]
  - INFUSION RELATED REACTION [None]
  - LISTERIA ENCEPHALITIS [None]
  - POLYNEUROPATHY [None]
  - VOMITING [None]
  - XANTHOMA [None]
